FAERS Safety Report 20920283 (Version 1)
Quarter: 2022Q2

REPORT INFORMATION
  Report Type: Spontaneous
  Country: FR (occurrence: FR)
  Receive Date: 20220606
  Receipt Date: 20220606
  Transmission Date: 20220720
  Serious: Yes (Other)
  Sender: FDA-Public Use
  Company Number: FR-ELI_LILLY_AND_COMPANY-FR202206000596

PATIENT
  Age: 65 Year
  Sex: Female

DRUGS (1)
  1. TERIPARATIDE [Suspect]
     Active Substance: TERIPARATIDE
     Indication: Product used for unknown indication
     Dosage: 20 UG, UNKNOWN
     Route: 065
     Dates: start: 20220121

REACTIONS (2)
  - Bone cyst [Recovered/Resolved]
  - Apical granuloma [Recovered/Resolved]

NARRATIVE: CASE EVENT DATE: 20220201
